FAERS Safety Report 21528081 (Version 1)
Quarter: 2022Q4

REPORT INFORMATION
  Report Type: Spontaneous
  Country: US (occurrence: US)
  Receive Date: 20221031
  Receipt Date: 20221031
  Transmission Date: 20230113
  Serious: No
  Sender: FDA-Public Use
  Company Number: US-RECKITT BENCKISER HEALTHCARE INT LIMITED-RB-091683-2022

PATIENT
  Age: 45 Year
  Sex: Female
  Weight: 63.64 kg

DRUGS (1)
  1. MUCINEX [Suspect]
     Active Substance: GUAIFENESIN
     Indication: Product used for unknown indication
     Dosage: PATIENT TOOK HALF TABLET
     Route: 048
     Dates: start: 20220620

REACTIONS (1)
  - Wrong technique in product usage process [Unknown]
